FAERS Safety Report 8193185-5 (Version None)
Quarter: 2012Q1

REPORT INFORMATION
  Report Type: 
  Country: None (occurrence: None)
  Receive Date: 20120308
  Receipt Date: 20120207
  Transmission Date: 20120608
  Serious: Yes (Other)
  Sender: FDA-Public Use
  Company Number: US-ASTELLAS-2012US002473

PATIENT

DRUGS (3)
  1. BEVACIZUMAB [Suspect]
     Indication: RECTAL CANCER
     Dosage: 5 MG/KG, Q2W
     Route: 065
  2. ERLOTINIB HYDROCHLORIDE [Suspect]
     Indication: RECTAL CANCER
     Dosage: 50 MG, WEEKS 1-3, CYCLIC
     Route: 048
  3. CAPECITABINE [Suspect]
     Indication: RECTAL CANCER
     Dosage: 1300 MG/M2, UID/QD
     Route: 065

REACTIONS (2)
  - OFF LABEL USE [None]
  - HYPERTENSION [None]
